FAERS Safety Report 19175388 (Version 1)
Quarter: 2021Q2

REPORT INFORMATION
  Report Type: Spontaneous
  Country: US (occurrence: US)
  Receive Date: 20210423
  Receipt Date: 20210423
  Transmission Date: 20210717
  Serious: Yes (Other)
  Sender: FDA-Public Use
  Company Number: US-GLAXOSMITHKLINE-US2021AMR087542

PATIENT
  Age: 59 Year
  Sex: Male
  Weight: 95.25 kg

DRUGS (6)
  1. BENADRYL [Suspect]
     Active Substance: DIPHENHYDRAMINE HYDROCHLORIDE
     Indication: COUGH
     Dosage: UNK
     Dates: start: 202103
  2. FLONASE [Suspect]
     Active Substance: FLUTICASONE PROPIONATE
     Indication: COUGH
     Dosage: UNK
     Dates: start: 202104
  3. PFIZER?BIONTECH COVID?19 VACCINE [Suspect]
     Active Substance: TOZINAMERAN
     Dosage: UNK
     Dates: start: 20210412
  4. ALLEGRA [Suspect]
     Active Substance: FEXOFENADINE HYDROCHLORIDE
     Indication: COUGH
     Dosage: UNK
     Dates: start: 20210411
  5. CODEINE [Suspect]
     Active Substance: CODEINE
     Indication: COUGH
     Dosage: UNK
     Dates: start: 20210411
  6. PFIZER?BIONTECH COVID?19 VACCINE [Suspect]
     Active Substance: TOZINAMERAN
     Indication: PRODUCT USED FOR UNKNOWN INDICATION
     Dosage: UNK
     Dates: start: 20210315

REACTIONS (4)
  - Multiple allergies [Unknown]
  - Insomnia [Unknown]
  - Productive cough [Not Recovered/Not Resolved]
  - Choking [Unknown]

NARRATIVE: CASE EVENT DATE: 202103
